FAERS Safety Report 5085922-3 (Version None)
Quarter: 2006Q3

REPORT INFORMATION
  Report Type: 
  Country: None (occurrence: None)
  Receive Date: 20060817
  Receipt Date: 20060807
  Transmission Date: 20061208
  Serious: Yes (Hospitalization)
  Sender: FDA-Public Use
  Company Number: 2006096845

PATIENT
  Age: 34 Year
  Sex: Male

DRUGS (6)
  1. XANAX [Suspect]
     Indication: DRUG USE FOR UNKNOWN INDICATION
     Dosage: 6 DOSE FORMS (1 D), ORAL
     Route: 048
     Dates: end: 20051231
  2. IMOVANE              (ZOPICLONE) [Concomitant]
  3. ABILIFY [Concomitant]
  4. ESPERAL                  (DISULFIRAM) [Concomitant]
  5. EFFEXOR [Concomitant]
  6. ALL OTHER THERAPEUTIC PRODUCTS [Concomitant]

REACTIONS (5)
  - ACCIDENT [None]
  - CONVULSION [None]
  - EFFUSION [None]
  - RENAL FAILURE ACUTE [None]
  - RHABDOMYOLYSIS [None]
